FAERS Safety Report 13767103 (Version 1)
Quarter: 2017Q3

REPORT INFORMATION
  Report Type: Spontaneous
  Country: US (occurrence: US)
  Receive Date: 20170719
  Receipt Date: 20170719
  Transmission Date: 20171127
  Serious: Yes (Hospitalization, Other)
  Sender: FDA-Public Use
  Company Number: US-ASTRAZENECA-2017SE72805

PATIENT
  Age: 80 Year
  Sex: Female
  Weight: 49.9 kg

DRUGS (10)
  1. POTASSIUM CITRATE. [Concomitant]
     Active Substance: POTASSIUM CITRATE
     Indication: CYSTITIS
     Dosage: DAILY
     Route: 065
  2. CRANBERRY EXTRACT [Concomitant]
     Active Substance: CRANBERRY JUICE
     Indication: SUPPLEMENTATION THERAPY
     Dosage: DAILY
     Route: 048
  3. VITAMIN B COMPLEX [Concomitant]
     Active Substance: CYANOCOBALAMIN\DEXPANTHENOL\NIACINAMIDE\PYRIDOXINE HYDROCHLORIDE\RIBOFLAVIN 5^-PHOSPHATE SODIUM\THIAMINE HYDROCHLORIDE\VITAMIN B COMPLEX
     Indication: VITAMIN SUPPLEMENTATION
     Dosage: DAILY
     Route: 048
  4. CALCIUM [Concomitant]
     Active Substance: CALCIUM
     Indication: SUPPLEMENTATION THERAPY
     Dosage: DAILY
     Route: 048
     Dates: start: 201706
  5. ARIMIDEX [Suspect]
     Active Substance: ANASTROZOLE
     Indication: BREAST CANCER FEMALE
     Route: 048
     Dates: start: 2013, end: 2016
  6. ARMOUR THYROID [Concomitant]
     Active Substance: THYROID, PORCINE
     Route: 048
  7. ARIMIDEX [Suspect]
     Active Substance: ANASTROZOLE
     Indication: BREAST CANCER FEMALE
     Route: 048
     Dates: start: 201706
  8. ALDACTONE [Concomitant]
     Active Substance: SPIRONOLACTONE
     Indication: HYPERTENSION
     Route: 048
  9. POTASSIUM CITRATE. [Concomitant]
     Active Substance: POTASSIUM CITRATE
     Indication: URINARY TRACT INFECTION
     Dosage: DAILY
     Route: 065
  10. TURMERIC EXTRACT [Concomitant]
     Indication: SUPPLEMENTATION THERAPY
     Dosage: DAILY
     Route: 048

REACTIONS (17)
  - Nausea [Unknown]
  - Dry eye [Recovered/Resolved]
  - Hypertension [Recovered/Resolved]
  - Eye pain [Recovered/Resolved]
  - Fall [Recovered/Resolved]
  - Pain [Recovered/Resolved]
  - Cystitis [Recovered/Resolved]
  - Malignant melanoma [Recovered/Resolved]
  - Rectal prolapse [Recovered/Resolved]
  - Kidney infection [Recovered/Resolved]
  - Hip fracture [Recovered/Resolved]
  - Depressed mood [Unknown]
  - Bladder prolapse [Recovered/Resolved]
  - Urinary tract infection [Recovered/Resolved]
  - Skin cancer [Recovered/Resolved]
  - Loss of consciousness [Recovered/Resolved]
  - Urinary incontinence [Not Recovered/Not Resolved]

NARRATIVE: CASE EVENT DATE: 2013
